FAERS Safety Report 7036968-7 (Version None)
Quarter: 2010Q4

REPORT INFORMATION
  Report Type: 
  Country: None (occurrence: None)
  Receive Date: 20101011
  Receipt Date: 20101006
  Transmission Date: 20110411
  Serious: Yes (Life-Threatening)
  Sender: FDA-Public Use
  Company Number: FR-ASTRAZENECA-2010SE47301

PATIENT
  Age: 15395 Day
  Sex: Female

DRUGS (9)
  1. NOLVADEX [Suspect]
     Indication: BREAST CANCER
     Route: 048
     Dates: start: 20060901
  2. FLUOROURACIL [Suspect]
     Indication: BREAST CANCER
     Dosage: 300 MG/M2 ONCE PER WEEK THREE COURSES
     Route: 042
     Dates: start: 20060101, end: 20060101
  3. EPIRUBICIN [Suspect]
     Indication: BREAST CANCER
     Dosage: 100 MG/M2 ONCE PER WEEK THREE COURSES
     Route: 042
     Dates: start: 20060101, end: 20060101
  4. CYCLOPHOSPHAMIDE [Suspect]
     Indication: BREAST CANCER
     Dosage: 500 MG/M2 ONCE PER WEEK THREE COURSES
     Route: 042
     Dates: start: 20060101, end: 20060101
  5. TAXOTERE [Suspect]
     Indication: BREAST CANCER
     Dosage: 100 MG/M2 THREE COURSES
     Route: 042
     Dates: start: 20060101, end: 20060101
  6. HERCEPTIN [Suspect]
     Indication: BREAST CANCER
     Route: 042
     Dates: start: 20060901
  7. RIVOTRIL [Concomitant]
  8. LEUPROLIDE ACETATE [Concomitant]
  9. KEPPRA [Concomitant]

REACTIONS (2)
  - ACUTE MYELOID LEUKAEMIA [None]
  - PANCYTOPENIA [None]
